FAERS Safety Report 9686117 (Version 3)
Quarter: 2022Q1

REPORT INFORMATION
  Report Type: Report from Study
  Country: AR (occurrence: AR)
  Receive Date: 20131113
  Receipt Date: 20220114
  Transmission Date: 20220424
  Serious: Yes (Hospitalization, Other)
  Sender: FDA-Public Use
  Company Number: PHHY2013AR129370

PATIENT
  Age: 71 Year
  Sex: Female

DRUGS (6)
  1. DIOVAN [Suspect]
     Active Substance: VALSARTAN
     Indication: Hypertension
     Dosage: 2.5 UNK, QD, MORE THAN 10 YEARS AGO
     Route: 048
  2. DIOVAN [Suspect]
     Active Substance: VALSARTAN
     Dosage: 2 DF (80MG), A DAY
     Route: 048
  3. DIOVAN [Suspect]
     Active Substance: VALSARTAN
     Dosage: 160 MG, TID IN THE MORNING IN AFTERNOON AND IN EVENING (MORE THAN 10 YEARS AGO)
     Route: 065
  4. CALCIUM [Concomitant]
     Active Substance: CALCIUM
     Indication: Product used for unknown indication
     Dosage: 1 DF, A DAY
     Route: 048
  5. DEMEROL [Concomitant]
     Active Substance: MEPERIDINE HYDROCHLORIDE
     Indication: Back pain
     Dosage: UNK
     Route: 065
  6. ROSUVASTATIN [Concomitant]
     Active Substance: ROSUVASTATIN
     Indication: Product used for unknown indication
     Dosage: 10 MG
     Route: 065

REACTIONS (32)
  - Intervertebral disc injury [Recovering/Resolving]
  - Pain [Recovering/Resolving]
  - Accident at home [Recovering/Resolving]
  - Fall [Recovering/Resolving]
  - Blood pressure increased [Recovered/Resolved]
  - Choking [Unknown]
  - Spinal fracture [Recovering/Resolving]
  - Cataract [Unknown]
  - Carotid artery disease [Unknown]
  - Visual impairment [Unknown]
  - Eye injury [Recovering/Resolving]
  - Nervousness [Recovering/Resolving]
  - Fear [Not Recovered/Not Resolved]
  - Tooth injury [Unknown]
  - Sensory disturbance [Recovered/Resolved]
  - Procedural pain [Unknown]
  - Memory impairment [Unknown]
  - Osteoarthritis [Unknown]
  - Movement disorder [Unknown]
  - Gait inability [Unknown]
  - Head injury [Unknown]
  - Face injury [Unknown]
  - Spinal pain [Unknown]
  - Osteoporosis [Unknown]
  - Intervertebral disc degeneration [Recovering/Resolving]
  - Gastroenteritis [Unknown]
  - Calcium metabolism disorder [Unknown]
  - Meniscus injury [Unknown]
  - Bronchospasm [Unknown]
  - Left ventricular hypertrophy [Unknown]
  - Hypersensitivity [Unknown]
  - Off label use [Unknown]

NARRATIVE: CASE EVENT DATE: 20210301
